FAERS Safety Report 9220381 (Version 1)
Quarter: 2013Q1

REPORT INFORMATION
  Report Type: Spontaneous
  Country: US (occurrence: None)
  Receive Date: 20120830
  Receipt Date: 20120830
  Transmission Date: 20140127
  Serious: Yes (Other)
  Sender: FDA-Public Use
  Company Number: PHEH2011US02721

PATIENT
  Age: 69 Year
  Sex: Male

DRUGS (3)
  1. SANDOSTATIN [Suspect]
     Indication: NEUROENDOCRINE CARCINOMA
  2. SANDOSTATIN [Suspect]
     Indication: CARCINOID SYNDROME
  3. AVASTIN (BEVACIZUMAB) [Concomitant]

REACTIONS (2)
  - Neoplasm malignant [None]
  - Drug ineffective [None]
